FAERS Safety Report 16509380 (Version 2)
Quarter: 2019Q3

REPORT INFORMATION
  Report Type: Report from Study
  Country: IT (occurrence: IT)
  Receive Date: 20190702
  Receipt Date: 20190708
  Transmission Date: 20191004
  Serious: Yes (Other)
  Sender: FDA-Public Use
  Company Number: IT-TEVA-2019-IT-1071679

PATIENT
  Age: 46 Year
  Sex: Female

DRUGS (1)
  1. RIBAVIRINA TEVA PHARMA BV [Suspect]
     Active Substance: RIBAVIRIN
     Indication: RESPIRATORY SYNCYTIAL VIRUS INFECTION
     Dosage: 800 MILLIGRAM DAILY;
     Route: 048
     Dates: start: 20181224, end: 20181229

REACTIONS (2)
  - Bone marrow failure [Recovered/Resolved]
  - Off label use [Recovered/Resolved]

NARRATIVE: CASE EVENT DATE: 20181229
